FAERS Safety Report 5661982-3 (Version None)
Quarter: 2008Q1

REPORT INFORMATION
  Report Type: 
  Country: None (occurrence: None)
  Receive Date: 20080201
  Receipt Date: 20061214
  Transmission Date: 20080703
  Serious: Yes (Other)
  Sender: FDA-Public Use
  Company Number: 475158

PATIENT
  Age: 53 Year
  Sex: Male
  Weight: 66.7 kg

DRUGS (13)
  1. COPEGUS [Suspect]
     Indication: HEPATITIS C
     Dates: start: 20060718
  2. PEG-INTRON [Suspect]
     Indication: HEPATITIS C
     Dosage: SUBCUTANEOUS
     Route: 058
     Dates: start: 20060718
  3. ALBUTEROL [Concomitant]
  4. ALBUTEROL/IPRATROPIUM (IPRATROPIUM BROMMIDE/SALBUTAMOL) [Concomitant]
  5. ASTHMANEX (MOMETASONE FUROATE) [Concomitant]
  6. DOCUSATE (DOCUSATE SODIUM) [Concomitant]
  7. DOXAZOSIN MESYLATE [Concomitant]
  8. ELAVIL [Concomitant]
  9. FORMOTEROL FUMARATE (FORMOTEROL) [Concomitant]
  10. METHADONE HCL (METHADONE) [Concomitant]
  11. OMEPRAZOLE [Concomitant]
  12. OXYCODONE HYDROCHLORIDE (OXYCODONE) [Concomitant]
  13. VITAMIN E (ALPHA-TOCOPHEROL) [Concomitant]

REACTIONS (10)
  - ASTHENIA [None]
  - CHILLS [None]
  - CHROMATURIA [None]
  - DIARRHOEA [None]
  - DYSPNOEA [None]
  - FUNGAL INFECTION [None]
  - LUNG INFECTION [None]
  - PNEUMONIA [None]
  - PRODUCTIVE COUGH [None]
  - WEIGHT DECREASED [None]
